FAERS Safety Report 8830087 (Version 1)
Quarter: 2012Q4

REPORT INFORMATION
  Report Type: 
  Country: JP (occurrence: JP)
  Receive Date: 20121008
  Receipt Date: 20121008
  Transmission Date: 20130627
  Serious: No
  Sender: FDA-Public Use
  Company Number: JP-TEVA-363297USA

PATIENT
  Age: 43 Year
  Sex: Female

DRUGS (1)
  1. BENDAMUSTINE [Suspect]
     Indication: MANTLE CELL LYMPHOMA
     Route: 042
     Dates: start: 201105

REACTIONS (2)
  - Liver disorder [Unknown]
  - Cytomegalovirus infection [Unknown]
